FAERS Safety Report 9818466 (Version 1)
Quarter: 2014Q1

REPORT INFORMATION
  Report Type: Spontaneous
  Country: US (occurrence: None)
  Receive Date: 20140113
  Receipt Date: 20140113
  Transmission Date: 20141002
  Serious: Yes (Hospitalization)
  Sender: FDA-Public Use
  Company Number: None

PATIENT
  Age: 76 Year
  Sex: Male
  Weight: 66.2 kg

DRUGS (2)
  1. DIVALPROEX [Suspect]
     Indication: AGITATION
     Dosage: MG  TID  PO
     Route: 048
     Dates: start: 20130901, end: 20131227
  2. QUETIAPINE [Concomitant]
     Indication: AGITATION
     Route: 048
     Dates: start: 20130901, end: 20131227

REACTIONS (5)
  - Hydrocephalus [None]
  - Encephalopathy [None]
  - Convulsion [None]
  - Neurodegenerative disorder [None]
  - Therapeutic response decreased [None]
